FAERS Safety Report 4381216-X (Version None)
Quarter: 2004Q2

REPORT INFORMATION
  Report Type: 
  Country: None (occurrence: None)
  Receive Date: 20040617
  Receipt Date: 20040617
  Transmission Date: 20050107
  Serious: Yes (Other)
  Sender: FDA-Public Use
  Company Number: None

PATIENT
  Age: 71 Year
  Sex: Male
  Weight: 89.3586 kg

DRUGS (8)
  1. FLUOXETINE [Suspect]
     Indication: DEPRESSION
     Dosage: @ 1 EACH DAILY/ YEARS
  2. LIPITOR [Concomitant]
  3. IMDUR [Concomitant]
  4. XANAX [Concomitant]
  5. ASPIRIN [Concomitant]
  6. ZANTAC [Concomitant]
  7. LISINOPRIL [Concomitant]
  8. MULTI-VITAMIN [Concomitant]

REACTIONS (1)
  - MYOCLONUS [None]
